FAERS Safety Report 24015598 (Version 2)
Quarter: 2024Q3

REPORT INFORMATION
  Report Type: Report from Study
  Country: CA (occurrence: CA)
  Receive Date: 20240626
  Receipt Date: 20240706
  Transmission Date: 20241017
  Serious: Yes (Other)
  Sender: AMGEN
  Company Number: CA-AMGEN-CANSL2024123714

PATIENT
  Age: 60 Year
  Sex: Female

DRUGS (1)
  1. ADALIMUMAB [Suspect]
     Active Substance: ADALIMUMAB\ISOPROPYL ALCOHOL
     Indication: Rheumatoid arthritis
     Dosage: 40 MILLIGRAM, Q2WK
     Route: 058
     Dates: start: 20240513

REACTIONS (10)
  - Gastroenteritis [Unknown]
  - Gastroenteritis radiation [Unknown]
  - Spinal operation [Unknown]
  - Headache [Unknown]
  - Urinary tract infection [Unknown]
  - Muscle spasms [Recovered/Resolved]
  - Pain [Recovering/Resolving]
  - Ill-defined disorder [Unknown]
  - Peripheral swelling [Recovering/Resolving]
  - Joint swelling [Recovering/Resolving]

NARRATIVE: CASE EVENT DATE: 20240101
